FAERS Safety Report 5129908-9 (Version None)
Quarter: 2006Q4

REPORT INFORMATION
  Report Type: 
  Country: None (occurrence: None)
  Receive Date: 20061012
  Receipt Date: 20060928
  Transmission Date: 20070319
  Serious: Yes (Death)
  Sender: FDA-Public Use
  Company Number: 2006SP003342

PATIENT
  Sex: Male

DRUGS (1)
  1. NOXAFIL [Suspect]
     Indication: FUNGAL INFECTION
     Dates: start: 20060901

REACTIONS (1)
  - DEATH [None]
